FAERS Safety Report 8676542 (Version 3)
Quarter: 2013Q4

REPORT INFORMATION
  Report Type: Spontaneous
  Country: CO (occurrence: CO)
  Receive Date: 20120705
  Receipt Date: 20131031
  Transmission Date: 20140711
  Serious: Yes (Hospitalization)
  Sender: FDA-Public Use
  Company Number: CO-009507513-2012SP036049

PATIENT
  Age: 51 Year
  Sex: Male

DRUGS (10)
  1. PEGINTRON [Suspect]
     Indication: HEPATITIS C
     Dosage: 100 MICROGRAM, QD
     Dates: start: 20120608
  2. MK-8908 [Suspect]
     Indication: HEPATITIS C
     Dosage: 1000 MG, QD
     Dates: start: 20120608
  3. MK-8908 [Suspect]
     Dosage: 800 MG, QD
     Dates: start: 20120712
  4. CYCLOSPORINE [Concomitant]
  5. OMEPRAZOLE [Concomitant]
  6. MAGNESIUM (UNSPECIFIED) [Concomitant]
  7. PREDNISOLONE [Concomitant]
  8. AZATIOPRIN [Concomitant]
  9. NIFEDIPINE [Concomitant]
  10. TRIMETOPRIM-SULFA [Concomitant]

REACTIONS (2)
  - Liver operation [Recovered/Resolved]
  - Bile duct stenosis [Recovered/Resolved]
